FAERS Safety Report 7942523-4 (Version None)
Quarter: 2011Q4

REPORT INFORMATION
  Report Type: 
  Country: None (occurrence: None)
  Receive Date: 20111128
  Receipt Date: 20111117
  Transmission Date: 20120403
  Serious: Yes (Other)
  Sender: FDA-Public Use
  Company Number: JP-GLAXOSMITHKLINE-B0761954A

PATIENT
  Age: 49 Year
  Sex: Female

DRUGS (3)
  1. PROPYLTHIOURACIL [Concomitant]
     Dosage: 200MG PER DAY
     Route: 048
  2. FLOLAN [Suspect]
     Indication: PULMONARY ARTERIAL HYPERTENSION
     Route: 042
     Dates: start: 19850101
  3. METHIMAZOLE [Concomitant]
     Route: 065
     Dates: start: 20070101

REACTIONS (7)
  - HYPERTHYROIDISM [None]
  - THYROIDITIS CHRONIC [None]
  - RASH [None]
  - GOITRE [None]
  - HAEMATURIA [None]
  - ANTI-THYROID ANTIBODY POSITIVE [None]
  - ANTINEUTROPHIL CYTOPLASMIC ANTIBODY POSITIVE [None]
